FAERS Safety Report 4831332-0 (Version None)
Quarter: 2005Q4

REPORT INFORMATION
  Report Type: 
  Country: None (occurrence: None)
  Receive Date: 20051116
  Receipt Date: 20051116
  Transmission Date: 20060501
  Serious: Yes (Hospitalization)
  Sender: FDA-Public Use
  Company Number: None

PATIENT
  Sex: Male
  Weight: 91.4 kg

DRUGS (4)
  1. TEMOZOLOMIDE 200MG/M2  SCHERRING PLOUGH [Suspect]
     Indication: GLIOBLASTOMA MULTIFORME
     Dosage: 420 MG PO DAILY X 5 DAYS Q 28 DAYS
     Route: 048
     Dates: start: 20051017, end: 20051021
  2. TOPOTECAN 1MG/M2 GLAXO-SMITHKLINE [Suspect]
     Indication: GLIOBLASTOMA MULTIFORME
     Dosage: 2.0MG PO DAILY X 5 DAYS Q 28 DAYS
     Route: 048
     Dates: start: 20051018, end: 20051022
  3. TRILEPTAL [Concomitant]
  4. ZANTAC [Concomitant]

REACTIONS (3)
  - DEEP VEIN THROMBOSIS [None]
  - MALIGNANT NEOPLASM PROGRESSION [None]
  - OEDEMA PERIPHERAL [None]
